FAERS Safety Report 5580105-2 (Version None)
Quarter: 2007Q4

REPORT INFORMATION
  Report Type: 
  Country: None (occurrence: None)
  Receive Date: 20071227
  Receipt Date: 20071227
  Transmission Date: 20080405
  Serious: Yes (Hospitalization)
  Sender: FDA-Public Use
  Company Number: None

PATIENT
  Age: 45 Year
  Sex: Male
  Weight: 97.977 kg

DRUGS (1)
  1. CUBICIN [Suspect]
     Indication: WOUND INFECTION
     Dosage: 500 MG  Q24H  IV
     Route: 042
     Dates: start: 20071111, end: 20071121

REACTIONS (2)
  - BLOOD CREATINE PHOSPHOKINASE INCREASED [None]
  - MUSCULAR WEAKNESS [None]
